FAERS Safety Report 6146369-1 (Version None)
Quarter: 2009Q2

REPORT INFORMATION
  Report Type: 
  Country: None (occurrence: None)
  Receive Date: 20090403
  Receipt Date: 20090403
  Transmission Date: 20091009
  Serious: Yes (Life-Threatening, Disabling)
  Sender: FDA-Public Use
  Company Number: None

PATIENT
  Sex: Female
  Weight: 97.5234 kg

DRUGS (1)
  1. ABILIFY [Suspect]
     Dosage: 15 MGS
     Dates: start: 20050101, end: 20090324

REACTIONS (5)
  - EYE DISORDER [None]
  - EYE ROLLING [None]
  - LOSS OF EMPLOYMENT [None]
  - MUSCLE SPASMS [None]
  - ROAD TRAFFIC ACCIDENT [None]
